FAERS Safety Report 10623137 (Version 1)
Quarter: 2014Q4

REPORT INFORMATION
  Report Type: Spontaneous
  Country: US (occurrence: US)
  Receive Date: 20141203
  Receipt Date: 20141203
  Transmission Date: 20150529
  Serious: No
  Sender: FDA-Public Use
  Company Number: US-MALLINCKRODT-T201402879

PATIENT
  Sex: Female

DRUGS (2)
  1. HYDROMORPHONE [Suspect]
     Active Substance: HYDROMORPHONE
     Indication: PROCEDURAL PAIN
     Dosage: 4 MG, UNK
     Route: 048
  2. HYDROMORPHONE [Suspect]
     Active Substance: HYDROMORPHONE
     Dosage: 4 MG; TOOK 2 PILLS WITHIN 2 1/2 HOURS
     Route: 065

REACTIONS (2)
  - Drug ineffective [Unknown]
  - Extra dose administered [Unknown]
